FAERS Safety Report 5008801-6 (Version None)
Quarter: 2006Q2

REPORT INFORMATION
  Report Type: 
  Country: None (occurrence: None)
  Receive Date: 20060518
  Receipt Date: 20060505
  Transmission Date: 20061013
  Serious: Yes (Hospitalization, Other)
  Sender: FDA-Public Use
  Company Number: HQWYE838614APR06

PATIENT
  Age: 59 Year
  Sex: Female
  Weight: 83.5 kg

DRUGS (9)
  1. RAPAMUNE [Suspect]
     Indication: PROPHYLAXIS AGAINST TRANSPLANT REJECTION
     Dosage: SEE IMAGE
     Route: 048
     Dates: start: 20060330, end: 20060412
  2. RAPAMUNE [Suspect]
     Indication: PROPHYLAXIS AGAINST TRANSPLANT REJECTION
     Dosage: SEE IMAGE
     Route: 048
     Dates: start: 20060417, end: 20060417
  3. RAPAMUNE [Suspect]
     Indication: PROPHYLAXIS AGAINST TRANSPLANT REJECTION
     Dosage: SEE IMAGE
     Route: 048
     Dates: start: 20060418
  4. BACTRIM [Concomitant]
  5. PRINIVIL [Concomitant]
  6. GLUCOPHAGE [Concomitant]
  7. MAGNESIUM GLUCONATE (MAGNESIUM GLUCONATE) [Concomitant]
  8. CALCIUM (CALCIUM) [Concomitant]
  9. MEVACOR [Concomitant]

REACTIONS (9)
  - ACUTE PRERENAL FAILURE [None]
  - ASTHENIA [None]
  - BODY TEMPERATURE INCREASED [None]
  - DEHYDRATION [None]
  - DIARRHOEA [None]
  - DIZZINESS [None]
  - HYPOTENSION [None]
  - INFECTION [None]
  - ORAL INTAKE REDUCED [None]
